FAERS Safety Report 7823869-7 (Version None)
Quarter: 2011Q4

REPORT INFORMATION
  Report Type: 
  Country: None (occurrence: None)
  Receive Date: 20111014
  Receipt Date: 20111005
  Transmission Date: 20120403
  Serious: Yes (Hospitalization)
  Sender: FDA-Public Use
  Company Number: GER/UKI/11/0021142

PATIENT
  Age: 79 Year
  Sex: Male

DRUGS (11)
  1. ASPIRIN [Concomitant]
  2. DIGOXIN [Concomitant]
  3. HUMULIN M3 INSULIN (HUMAN MIXTARD) [Concomitant]
  4. ACETAMINOPHEN [Concomitant]
  5. CLOPIDOGREL [Suspect]
     Indication: STENT PLACEMENT
     Dosage: 75 MG, 1 IN 1 D
     Dates: start: 20110820, end: 20110901
  6. FUROSEMIDE [Concomitant]
  7. RAMIPRIL [Concomitant]
  8. AMLODIPINE [Concomitant]
  9. BISOPROLOL FUMARATE [Concomitant]
  10. CLINDAMYCIN [Concomitant]
  11. SIMVASTATIN [Concomitant]

REACTIONS (4)
  - RASH PRURITIC [None]
  - LEUKOCYTOCLASTIC VASCULITIS [None]
  - DERMATITIS BULLOUS [None]
  - PURPURA [None]
